FAERS Safety Report 13406801 (Version 1)
Quarter: 2017Q2

REPORT INFORMATION
  Report Type: Spontaneous
  Country: US (occurrence: US)
  Receive Date: 20170405
  Receipt Date: 20170405
  Transmission Date: 20170830
  Serious: No
  Sender: FDA-Public Use
  Company Number: US-ALLERGAN-1712188US

PATIENT
  Age: 23 Year
  Sex: Female

DRUGS (1)
  1. LILETTA [Suspect]
     Active Substance: LEVONORGESTREL
     Indication: CONTRACEPTION
     Dosage: 52 MG, UNK
     Route: 015
     Dates: start: 20161111

REACTIONS (3)
  - Drug ineffective [Unknown]
  - Pregnancy [Not Recovered/Not Resolved]
  - Device expulsion [Unknown]
